FAERS Safety Report 24326849 (Version 1)
Quarter: 2024Q3

REPORT INFORMATION
  Report Type: Spontaneous
  Country: CH (occurrence: CH)
  Receive Date: 20240917
  Receipt Date: 20240917
  Transmission Date: 20241017
  Serious: Yes (Hospitalization, Other)
  Sender: CELLTRION
  Company Number: CH-CELLTRION INC.-2024CH021881

PATIENT

DRUGS (1)
  1. RITUXIMAB [Suspect]
     Active Substance: RITUXIMAB
     Indication: Relapsing-remitting multiple sclerosis
     Dosage: HALF-YEARLY INFUSIONS; LAST INFUSION OF RITUXIMAB WAS 4 MONTHS AGO

REACTIONS (4)
  - Post-acute COVID-19 syndrome [Unknown]
  - Humoral immune defect [Unknown]
  - Breakthrough COVID-19 [Unknown]
  - Intentional product use issue [Unknown]
